FAERS Safety Report 25701085 (Version 3)
Quarter: 2025Q3

REPORT INFORMATION
  Report Type: Spontaneous
  Country: US (occurrence: US)
  Receive Date: 20250819
  Receipt Date: 20250827
  Transmission Date: 20251021
  Serious: No
  Sender: PFIZER
  Company Number: US-PFIZER INC-202500165807

PATIENT
  Age: 49 Year
  Sex: Female

DRUGS (1)
  1. IBRANCE [Suspect]
     Active Substance: PALBOCICLIB
     Dosage: 28-DAY SUPPLY TAKE 1 TAB PO (PER ORAL) DAILY
     Route: 048

REACTIONS (2)
  - Metabolic function test abnormal [Unknown]
  - Laryngeal pain [Not Recovered/Not Resolved]

NARRATIVE: CASE EVENT DATE: 20250815
